FAERS Safety Report 24176445 (Version 2)
Quarter: 2024Q4

REPORT INFORMATION
  Report Type: Spontaneous
  Country: US (occurrence: US)
  Receive Date: 20240806
  Receipt Date: 20241021
  Transmission Date: 20250114
  Serious: No
  Sender: Haleon PLC
  Company Number: US-HALEON-2190486

PATIENT

DRUGS (1)
  1. NICODERM CQ [Suspect]
     Active Substance: NICOTINE
     Indication: Smoking cessation therapy
     Dosage: EXPDATE:20260930EXPDATE:20260930

REACTIONS (1)
  - Application site bruise [Not Recovered/Not Resolved]
